FAERS Safety Report 26134833 (Version 1)
Quarter: 2025Q4

REPORT INFORMATION
  Report Type: Report from Study
  Country: US (occurrence: US)
  Receive Date: 20251209
  Receipt Date: 20251209
  Transmission Date: 20260118
  Serious: Yes (Other)
  Sender: BAYER HEALTHCARE LLC
  Company Number: US-BAYER-2025A161218

PATIENT
  Age: 33 Year
  Sex: Female

DRUGS (1)
  1. ASPIRIN [Suspect]
     Active Substance: ASPIRIN
     Indication: Thrombosis prophylaxis

REACTIONS (5)
  - Caesarean section [None]
  - Maternal exposure during pregnancy [None]
  - Contraindicated product administered [None]
  - Product use in unapproved indication [None]
  - Product prescribing issue [None]
